FAERS Safety Report 15897261 (Version 1)
Quarter: 2019Q1

REPORT INFORMATION
  Report Type: Spontaneous
  Country: US (occurrence: US)
  Receive Date: 20190131
  Receipt Date: 20190131
  Transmission Date: 20190417
  Serious: Yes (Other)
  Sender: FDA-Public Use
  Company Number: US-B.I. PHARMACEUTICALS,INC./RIDGEFIELD-2019-BI-003179

PATIENT
  Sex: Female

DRUGS (1)
  1. MIRAPEX [Suspect]
     Active Substance: PRAMIPEXOLE DIHYDROCHLORIDE
     Indication: PRODUCT USED FOR UNKNOWN INDICATION
     Dosage: ADMINISTRATION CORRECT? NR(NOT REPORTED) ?ACTION(S) TAKEN WITH PRODUCT: DRUG WITHDRAWN
     Route: 065
     Dates: start: 200807, end: 201802

REACTIONS (6)
  - Road traffic accident [Unknown]
  - Depression [Unknown]
  - Gambling disorder [Recovered/Resolved]
  - Sleep attacks [Not Recovered/Not Resolved]
  - Fatigue [Not Recovered/Not Resolved]
  - Self-injurious ideation [Unknown]
